FAERS Safety Report 10534500 (Version 11)
Quarter: 2016Q4

REPORT INFORMATION
  Report Type: Spontaneous
  Country: US (occurrence: US)
  Receive Date: 20141022
  Receipt Date: 20161204
  Transmission Date: 20170206
  Serious: Yes (Hospitalization, Other)
  Sender: FDA-Public Use
  Company Number: US-GLAXOSMITHKLINE-A1077438A

PATIENT
  Age: 63 Year
  Sex: Female

DRUGS (15)
  1. FLOLAN [Suspect]
     Active Substance: EPOPROSTENOL SODIUM
     Dosage: 32 NG/KG/MIN (CONCENTRATION 45,000 NG/ML, PUMP RATE 85 ML/DAY, 1.5 MG VIAL STRENGHT
  2. FLOLAN [Suspect]
     Active Substance: EPOPROSTENOL SODIUM
     Dosage: UNK
     Dates: start: 20110714
  3. WARFARIN [Concomitant]
     Active Substance: WARFARIN
  4. FLOLAN [Suspect]
     Active Substance: EPOPROSTENOL SODIUM
     Dosage: 34 DF, CO
  5. OPSUMIT [Concomitant]
     Active Substance: MACITENTAN
  6. FLOLAN [Suspect]
     Active Substance: EPOPROSTENOL SODIUM
     Dosage: 34 NG/KG/MIN CONTINUOUS
     Route: 042
  7. FLOLAN [Suspect]
     Active Substance: EPOPROSTENOL SODIUM
     Indication: PULMONARY ARTERIAL HYPERTENSION
     Dosage: 35 NG/KG/MIN CONTINUOUS
     Route: 042
     Dates: start: 20110613
  8. FLOLAN [Suspect]
     Active Substance: EPOPROSTENOL SODIUM
     Dosage: 34 DF, CO
  9. REVATIO [Concomitant]
     Active Substance: SILDENAFIL CITRATE
  10. SILDENAFIL CITRATE. [Concomitant]
     Active Substance: SILDENAFIL CITRATE
  11. FLOLAN [Suspect]
     Active Substance: EPOPROSTENOL SODIUM
     Dosage: 32 NG/KG/MIN, CONCENTRATION 45,000 NG/ML, VIAL STRENGTH 1.5 MG
     Route: 042
     Dates: start: 20110713
  12. FLOLAN [Suspect]
     Active Substance: EPOPROSTENOL SODIUM
     Dosage: 32 NG/KG/MIN (CONCENTRATION 45,000 NG/ML, PUMP RATE 85 ML/DAY, 1.5 MG VIAL STRENGHT
  13. FLOLAN [Suspect]
     Active Substance: EPOPROSTENOL SODIUM
     Dosage: 34 NG/KG/MIN CONTINUOUSLY
  14. FLOLAN [Suspect]
     Active Substance: EPOPROSTENOL SODIUM
     Indication: PULMONARY ARTERIAL HYPERTENSION
  15. COUMADIN [Concomitant]
     Active Substance: WARFARIN SODIUM

REACTIONS (12)
  - Lung infection [Unknown]
  - Dysphonia [Not Recovered/Not Resolved]
  - Hospitalisation [Unknown]
  - Dyspnoea [Unknown]
  - Complication associated with device [Unknown]
  - Cough [Unknown]
  - Nasopharyngitis [Unknown]
  - Multiple allergies [Unknown]
  - Sinusitis [Unknown]
  - Chest pain [Unknown]
  - Bronchitis [Unknown]
  - Malaise [Recovering/Resolving]

NARRATIVE: CASE EVENT DATE: 20150514
